FAERS Safety Report 6347215-3 (Version None)
Quarter: 2009Q3

REPORT INFORMATION
  Report Type: 
  Country: None (occurrence: None)
  Receive Date: 20090910
  Receipt Date: 20090901
  Transmission Date: 20100115
  Serious: Yes (Other)
  Sender: FDA-Public Use
  Company Number: GB-ROCHE-654090

PATIENT
  Age: 30 Year
  Sex: Male

DRUGS (4)
  1. TAMIFLU [Suspect]
     Indication: INFLUENZA
     Route: 065
     Dates: start: 20090808, end: 20090813
  2. NIGHT NURSE [Concomitant]
  3. AMOXICILLIN AND CLAVULANATE POTASSIUM [Concomitant]
     Indication: TOOTHACHE
  4. IBUPROFEN [Concomitant]

REACTIONS (1)
  - HEPATITIS [None]
